FAERS Safety Report 14615529 (Version 1)
Quarter: 2018Q1

REPORT INFORMATION
  Report Type: Spontaneous
  Country: None (occurrence: FR)
  Receive Date: 20180308
  Receipt Date: 20180308
  Transmission Date: 20180509
  Serious: Yes (Other)
  Sender: FDA-Public Use
  Company Number: FR-MERCK KGAA-2043367

PATIENT
  Age: 56 Year
  Sex: Female

DRUGS (1)
  1. NOVOTHYROX [Suspect]
     Active Substance: LEVOTHYROXINE SODIUM
     Indication: POST PROCEDURAL HYPOTHYROIDISM

REACTIONS (24)
  - Grip strength decreased [None]
  - Blood thyroid stimulating hormone decreased [None]
  - Social avoidant behaviour [None]
  - Hypokinesia [None]
  - Weight decreased [None]
  - Depression [None]
  - Loss of personal independence in daily activities [None]
  - Crying [None]
  - Thyroxine free increased [None]
  - Dyspnoea [None]
  - Reading disorder [None]
  - Heart rate increased [None]
  - Migraine [None]
  - Nausea [None]
  - Dizziness [None]
  - Feeling hot [None]
  - Tremor [None]
  - Fatigue [None]
  - Sleep disorder [None]
  - Tachycardia [None]
  - Muscular weakness [None]
  - Suicidal ideation [None]
  - Discomfort [None]
  - Thyroglobulin decreased [None]

NARRATIVE: CASE EVENT DATE: 20171024
